FAERS Safety Report 25910993 (Version 2)
Quarter: 2025Q4

REPORT INFORMATION
  Report Type: Report from Study
  Country: US (occurrence: US)
  Receive Date: 20251013
  Receipt Date: 20251229
  Transmission Date: 20260117
  Serious: No
  Sender: BIOGEN
  Company Number: US-BIOGEN-2025BI01326651

PATIENT
  Age: 24 Year
  Sex: Female

DRUGS (2)
  1. ZURZUVAE [Suspect]
     Active Substance: ZURANOLONE
     Indication: Perinatal depression
     Dates: start: 20250920, end: 20250921
  2. ZURZUVAE [Suspect]
     Active Substance: ZURANOLONE
     Dosage: DOSAGE TEXT:TAKE 2 CAPSULES ONCE DAILY FOR 14 DAYS.
     Dates: start: 20250919

REACTIONS (1)
  - Somnolence [Unknown]
